FAERS Safety Report 8921869 (Version 1)
Quarter: 2012Q4

REPORT INFORMATION
  Report Type: 
  Country: DE (occurrence: DE)
  Receive Date: 20121121
  Receipt Date: 20121121
  Transmission Date: 20130627
  Serious: Yes (Other)
  Sender: FDA-Public Use
  Company Number: DE-PFIZER INC-2012290692

PATIENT

DRUGS (1)
  1. FESOTERODINE [Suspect]
     Indication: ALZHEIMER^S DISEASE
     Dosage: 4 and 8 mg / day

REACTIONS (1)
  - Hallucination, visual [Unknown]
